FAERS Safety Report 8994951 (Version 1)
Quarter: 2012Q4

REPORT INFORMATION
  Report Type: Spontaneous
  Country: US (occurrence: None)
  Receive Date: 20121228
  Receipt Date: 20121228
  Transmission Date: 20130627
  Serious: Yes (Other)
  Sender: FDA-Public Use
  Company Number: None

PATIENT
  Age: 30 Year
  Sex: Female

DRUGS (1)
  1. PHENTERMINE [Suspect]
     Indication: WEIGHT LOSS
     Dosage: 37.5 mg once daily po
     Route: 048
     Dates: start: 20121001, end: 20121110

REACTIONS (2)
  - Hypoaesthesia [None]
  - Muscle tightness [None]
